FAERS Safety Report 25906651 (Version 5)
Quarter: 2025Q4

REPORT INFORMATION
  Report Type: Spontaneous
  Country: US (occurrence: US)
  Receive Date: 20251010
  Receipt Date: 20251201
  Transmission Date: 20260117
  Serious: Yes (Other)
  Sender: PFIZER
  Company Number: US-PFIZER INC-PV202500109033

PATIENT
  Age: 88 Year
  Sex: Female
  Weight: 58.97 kg

DRUGS (1)
  1. PREMARIN [Suspect]
     Active Substance: ESTROGENS, CONJUGATED
     Indication: Urinary tract infection
     Dosage: THINKS .5 ON IT FOR AMOUNT OF CREAM, TWO TIMES ONE WEEK, THEN NOTHING, THEN NEXT WEEK

REACTIONS (3)
  - Parkinson^s disease [Unknown]
  - Vaginal infection [Recovered/Resolved]
  - Off label use [Unknown]

NARRATIVE: CASE EVENT DATE: 20251001
